FAERS Safety Report 4533644-7 (Version None)
Quarter: 2004Q4

REPORT INFORMATION
  Report Type: 
  Country: None (occurrence: None)
  Receive Date: 20041221
  Receipt Date: 20041216
  Transmission Date: 20050328
  Serious: Yes (Hospitalization, Other)
  Sender: FDA-Public Use
  Company Number: US-GLAXOSMITHKLINE-A0537511A

PATIENT
  Age: 77 Year
  Sex: Female
  Weight: 96.4 kg

DRUGS (4)
  1. TUMS [Suspect]
     Indication: COLITIS
     Route: 048
  2. DILANTIN [Concomitant]
     Indication: EPILEPSY
     Route: 048
  3. VITAMIN E [Concomitant]
     Route: 048
  4. PHENOBARBITAL TAB [Concomitant]
     Indication: EPILEPSY
     Route: 048

REACTIONS (3)
  - HEART SOUNDS ABNORMAL [None]
  - OSTEOPOROSIS [None]
  - UMBILICAL HERNIA [None]
